FAERS Safety Report 16745384 (Version 3)
Quarter: 2020Q1

REPORT INFORMATION
  Report Type: Spontaneous
  Country: US (occurrence: US)
  Receive Date: 20190827
  Receipt Date: 20200103
  Transmission Date: 20200409
  Serious: No
  Sender: FDA-Public Use
  Company Number: US-PFIZER INC-2019367342

PATIENT
  Age: 48 Year
  Sex: Female

DRUGS (2)
  1. ELETRIPTAN HBR [Suspect]
     Active Substance: ELETRIPTAN HYDROBROMIDE
     Indication: MIGRAINE
     Dosage: 40 MG, 1X/DAY (AT THE ONSET OF A HEADACHE, MAY REPEAT IN 2 HOURS IF NEEDED)
     Route: 048
  2. ELETRIPTAN HBR [Suspect]
     Active Substance: ELETRIPTAN HYDROBROMIDE
     Indication: HEADACHE

REACTIONS (3)
  - Nausea [Unknown]
  - Urticaria [Unknown]
  - Drug ineffective [Unknown]
